FAERS Safety Report 4350209-0 (Version None)
Quarter: 2004Q1

REPORT INFORMATION
  Report Type: 
  Country: None (occurrence: None)
  Receive Date: 20040329
  Receipt Date: 20040126
  Transmission Date: 20041129
  Serious: No
  Sender: FDA-Public Use
  Company Number: USA040157627

PATIENT
  Age: 8 Year
  Sex: Female
  Weight: 32 kg

DRUGS (5)
  1. STRATTERA [Suspect]
     Dosage: 45 MG DAY
     Dates: start: 20030401
  2. CALCIUM [Concomitant]
  3. FISH OIL [Concomitant]
  4. TENEX (GUANFACINE HYDROHCLORIDE) [Concomitant]
  5. SINGULAR (MONTELUKAST SODIUM) [Concomitant]

REACTIONS (3)
  - BELLIGERENCE [None]
  - FEELING ABNORMAL [None]
  - MOOD SWINGS [None]
